FAERS Safety Report 7075791-4 (Version None)
Quarter: 2010Q4

REPORT INFORMATION
  Report Type: 
  Country: None (occurrence: None)
  Receive Date: 20101101
  Receipt Date: 20101022
  Transmission Date: 20110411
  Serious: Yes (Hospitalization, Other)
  Sender: FDA-Public Use
  Company Number: US-BIOGENIDEC-2010BI036977

PATIENT
  Age: 59 Year
  Sex: Female

DRUGS (2)
  1. AVONEX [Suspect]
     Indication: MULTIPLE SCLEROSIS
     Route: 030
     Dates: start: 20041026, end: 20061106
  2. AVONEX [Suspect]
     Route: 030
     Dates: start: 20091226

REACTIONS (2)
  - CEREBROVASCULAR ACCIDENT [None]
  - GAIT DISTURBANCE [None]
